FAERS Safety Report 6637161-X (Version None)
Quarter: 2010Q1

REPORT INFORMATION
  Report Type: 
  Country: None (occurrence: None)
  Receive Date: 20100316
  Receipt Date: 20100223
  Transmission Date: 20100710
  Serious: No
  Sender: FDA-Public Use
  Company Number: US-ABBOTT-09P-163-0595751-00

PATIENT
  Sex: Male
  Weight: 84.444 kg

DRUGS (1)
  1. TRILIPIX [Suspect]
     Indication: HYPERLIPIDAEMIA
     Dates: start: 20091001, end: 20091201

REACTIONS (1)
  - RENAL FUNCTION TEST ABNORMAL [None]
